FAERS Safety Report 19562852 (Version 1)
Quarter: 2021Q3

REPORT INFORMATION
  Report Type: Spontaneous
  Country: US (occurrence: US)
  Receive Date: 20210716
  Receipt Date: 20210716
  Transmission Date: 20211014
  Serious: Yes (Other)
  Sender: FDA-Public Use
  Company Number: NVSC2021US157953

PATIENT
  Age: 60 Year
  Sex: Female

DRUGS (2)
  1. RANITIDINE. [Suspect]
     Active Substance: RANITIDINE
     Indication: PAIN
     Dosage: 300 MG, QD
     Route: 065
     Dates: start: 201102, end: 201912
  2. RANITIDINE. [Suspect]
     Active Substance: RANITIDINE
     Indication: PAIN
     Dosage: 300 MG, QD
     Route: 065
     Dates: start: 201102, end: 201912

REACTIONS (4)
  - Ovarian cancer stage III [Unknown]
  - Bone cancer [Unknown]
  - Hepatic cancer stage I [Unknown]
  - Product use in unapproved indication [Unknown]

NARRATIVE: CASE EVENT DATE: 20170701
